FAERS Safety Report 7177353-7 (Version None)
Quarter: 2010Q4

REPORT INFORMATION
  Report Type: 
  Country: None (occurrence: None)
  Receive Date: 20101220
  Receipt Date: 20101206
  Transmission Date: 20110411
  Serious: Yes (Other)
  Sender: FDA-Public Use
  Company Number: PHHY2010US71902

PATIENT
  Sex: Female

DRUGS (15)
  1. RECLAST [Suspect]
     Indication: OSTEOPOROSIS
     Dosage: UNK
     Dates: start: 20101019
  2. VICODIN [Concomitant]
  3. PREDNISONE [Concomitant]
  4. ADVAIR [Concomitant]
  5. PRO-AIR (PROCATEROL HYDROCHLORIDE) [Concomitant]
  6. ALBUTEROL SULFATE [Concomitant]
  7. DILTIAZEM [Concomitant]
  8. AMBIEN [Concomitant]
  9. PLAQUCINEL [Concomitant]
  10. LOVASAL [Concomitant]
  11. CALCIUM [Concomitant]
  12. VITAMIN D [Concomitant]
  13. ASCORBIC ACID [Concomitant]
  14. COLACE [Concomitant]
  15. ZOLPIDEM TARTRATE [Concomitant]

REACTIONS (5)
  - DRUG INEFFECTIVE [None]
  - MOVEMENT DISORDER [None]
  - PAIN [None]
  - SPINAL FRACTURE [None]
  - WALKING AID USER [None]
